FAERS Safety Report 6472340-6 (Version None)
Quarter: 2009Q4

REPORT INFORMATION
  Report Type: 
  Country: None (occurrence: None)
  Receive Date: 20091201
  Receipt Date: 20091120
  Transmission Date: 20100525
  Serious: Yes (Hospitalization)
  Sender: FDA-Public Use
  Company Number: UTC-000724

PATIENT
  Age: 79 Year
  Sex: Male
  Weight: 149.8 kg

DRUGS (13)
  1. TYVASO [Suspect]
     Indication: PULMONARY ARTERIAL HYPERTENSION
     Dosage: INHALATION
     Route: 055
     Dates: start: 20091117
  2. REVATIO [Concomitant]
  3. GLIMEPIRIDE [Concomitant]
  4. NIFEDIPINE [Concomitant]
  5. FEXOFENADINE HCL [Concomitant]
  6. DIOVAN [Concomitant]
  7. OMEPRAZOLE [Concomitant]
  8. SPIRONOLACTONE [Concomitant]
  9. VERAPAMIL [Concomitant]
  10. PROPO-N/APAP (APOREX) [Concomitant]
  11. LASIX [Concomitant]
  12. MILK OF MAGNESIA TAB [Concomitant]
  13. DOCUSATE SODIUM (DOCUSATE SODIUM) [Concomitant]

REACTIONS (1)
  - OXYGEN SATURATION DECREASED [None]
